FAERS Safety Report 7488847-9 (Version None)
Quarter: 2011Q2

REPORT INFORMATION
  Report Type: 
  Country: None (occurrence: None)
  Receive Date: 20110518
  Receipt Date: 20110504
  Transmission Date: 20111010
  Serious: Yes (Hospitalization)
  Sender: FDA-Public Use
  Company Number: US-JNJFOC-20110502875

PATIENT
  Sex: Female
  Weight: 117.94 kg

DRUGS (4)
  1. REMICADE [Suspect]
     Indication: CROHN'S DISEASE
     Route: 042
     Dates: start: 20040801
  2. K-DUR [Concomitant]
     Indication: ELECTROLYTE SUBSTITUTION THERAPY
     Dosage: 20 MEQ IN AM, 10 MEQ IN PM
     Route: 048
     Dates: start: 19950101
  3. WELLBUTRIN [Concomitant]
     Indication: ANXIETY
     Route: 048
  4. LASIX [Concomitant]
     Indication: OEDEMA PERIPHERAL
     Route: 048
     Dates: start: 19950101

REACTIONS (8)
  - INSOMNIA [None]
  - ENDOMETRIAL CANCER [None]
  - OSTEOARTHRITIS [None]
  - IMPAIRED HEALING [None]
  - HEART RATE INCREASED [None]
  - OESOPHAGEAL SPASM [None]
  - PNEUMONIA [None]
  - BLOOD CHOLESTEROL INCREASED [None]
